FAERS Safety Report 10172091 (Version 2)
Quarter: 2014Q2

REPORT INFORMATION
  Report Type: Spontaneous
  Country: US (occurrence: US)
  Receive Date: 20140515
  Receipt Date: 20140605
  Transmission Date: 20141212
  Serious: No
  Sender: FDA-Public Use
  Company Number: US-009507513-1405USA000292

PATIENT
  Age: 75 Year
  Sex: Female

DRUGS (2)
  1. OXYTROL FOR WOMEN [Suspect]
     Indication: HYPERTONIC BLADDER
     Dosage: 1 DF, Q4D
     Route: 062
     Dates: start: 20140403, end: 20140414
  2. OXYTROL FOR WOMEN [Suspect]
     Indication: NOCTURIA

REACTIONS (2)
  - Hypertonic bladder [Not Recovered/Not Resolved]
  - Nocturia [Not Recovered/Not Resolved]
